FAERS Safety Report 7919875-4 (Version None)
Quarter: 2011Q4

REPORT INFORMATION
  Report Type: 
  Country: None (occurrence: None)
  Receive Date: 20111117
  Receipt Date: 20111108
  Transmission Date: 20120403
  Serious: Yes (Other)
  Sender: FDA-Public Use
  Company Number: US-US-EMD SERONO, INC.-7092863

PATIENT
  Sex: Female

DRUGS (1)
  1. REBIF [Suspect]
     Indication: MULTIPLE SCLEROSIS
     Route: 058
     Dates: start: 20100405

REACTIONS (7)
  - BLINDNESS [None]
  - TONGUE BITING [None]
  - LOSS OF CONSCIOUSNESS [None]
  - HEAD INJURY [None]
  - DIZZINESS [None]
  - FALL [None]
  - HYPOTHYROIDISM [None]
